FAERS Safety Report 9874497 (Version 1)
Quarter: 2014Q1

REPORT INFORMATION
  Report Type: Spontaneous
  Country: US (occurrence: US)
  Receive Date: 20140206
  Receipt Date: 20140206
  Transmission Date: 20141002
  Serious: No
  Sender: FDA-Public Use
  Company Number: US-BIOGENIDEC-2014BI010756

PATIENT
  Age: 58 Year
  Sex: Female

DRUGS (3)
  1. AVONEX [Suspect]
     Indication: MULTIPLE SCLEROSIS
     Route: 030
     Dates: start: 19970101
  2. AVONEX [Suspect]
     Indication: MULTIPLE SCLEROSIS
     Route: 030
  3. AVONEX [Suspect]
     Indication: MULTIPLE SCLEROSIS
     Route: 030
     Dates: start: 20131018

REACTIONS (6)
  - Multiple sclerosis [Not Recovered/Not Resolved]
  - Drug dose omission [Recovered/Resolved]
  - Burnout syndrome [Recovered/Resolved]
  - Panic reaction [Recovered/Resolved]
  - Haemorrhage [Recovered/Resolved]
  - Asthenia [Recovered/Resolved]
